FAERS Safety Report 9716257 (Version 1)
Quarter: 2013Q4

REPORT INFORMATION
  Report Type: Spontaneous
  Country: US (occurrence: CO)
  Receive Date: 20131127
  Receipt Date: 20131127
  Transmission Date: 20140711
  Serious: Yes (Other)
  Sender: FDA-Public Use
  Company Number: CO-BRISTOL-MYERS SQUIBB COMPANY-19814573

PATIENT
  Age: 95 Year
  Sex: Female
  Weight: 63.49 kg

DRUGS (1)
  1. COUMADIN [Suspect]

REACTIONS (3)
  - Cardiac pacemaker insertion [Unknown]
  - Tooth extraction [Unknown]
  - Malaise [Unknown]
